FAERS Safety Report 8166107-0 (Version None)
Quarter: 2012Q1

REPORT INFORMATION
  Report Type: 
  Country: None (occurrence: None)
  Receive Date: 20120227
  Receipt Date: 20110322
  Transmission Date: 20120608
  Serious: Yes (Other)
  Sender: FDA-Public Use
  Company Number: US-MYLANLABS-2011S1005999

PATIENT
  Sex: Female

DRUGS (8)
  1. ACCUTANE [Suspect]
     Indication: ACNE
     Dates: start: 20050601, end: 20060201
  2. ACCUTANE [Suspect]
     Dates: start: 20070301, end: 20070401
  3. AMNESTEEM [Suspect]
     Indication: ACNE
     Dates: start: 20050601, end: 20060201
  4. CLARAVIS [Suspect]
     Dates: start: 20070301, end: 20070401
  5. SOTRET [Suspect]
     Indication: ACNE
     Dates: start: 20050601, end: 20060201
  6. SOTRET [Suspect]
     Dates: start: 20070301, end: 20070401
  7. AMNESTEEM [Suspect]
     Dates: start: 20070301, end: 20070401
  8. CLARAVIS [Suspect]
     Indication: ACNE
     Dates: start: 20050601, end: 20060201

REACTIONS (1)
  - INFLAMMATORY BOWEL DISEASE [None]
